FAERS Safety Report 14076404 (Version 1)
Quarter: 2017Q4

REPORT INFORMATION
  Report Type: Spontaneous
  Country: US (occurrence: US)
  Receive Date: 20171011
  Receipt Date: 20171011
  Transmission Date: 20180321
  Serious: No
  Sender: FDA-Public Use
  Company Number: US-BAYER-2017-189171

PATIENT
  Age: 56 Year
  Sex: Female

DRUGS (1)
  1. CLIMARA PRO [Suspect]
     Active Substance: ESTRADIOL\LEVONORGESTREL
     Indication: HORMONE REPLACEMENT THERAPY
     Dosage: UNK
     Route: 062
     Dates: start: 20170901, end: 2017

REACTIONS (4)
  - Application site exfoliation [Recovering/Resolving]
  - Application site irritation [Recovering/Resolving]
  - Application site rash [Recovering/Resolving]
  - Application site erosion [Recovering/Resolving]

NARRATIVE: CASE EVENT DATE: 2017
